FAERS Safety Report 5444424-2 (Version None)
Quarter: 2007Q3

REPORT INFORMATION
  Report Type: 
  Country: None (occurrence: None)
  Receive Date: 20070904
  Receipt Date: 20070904
  Transmission Date: 20080115
  Serious: Yes (Other)
  Sender: FDA-Public Use
  Company Number: None

PATIENT
  Age: 24 Year
  Sex: Female
  Weight: 95.2554 kg

DRUGS (1)
  1. TOPAMAX [Suspect]
     Indication: MIGRAINE PROPHYLAXIS
     Dosage: 25MG TITRATION DOSED PO
     Route: 048
     Dates: start: 20070820, end: 20070829

REACTIONS (2)
  - INTRAOCULAR PRESSURE INCREASED [None]
  - VISION BLURRED [None]
